FAERS Safety Report 26184592 (Version 1)
Quarter: 2025Q4

REPORT INFORMATION
  Report Type: Report from Study
  Country: US (occurrence: US)
  Receive Date: 20251222
  Receipt Date: 20251222
  Transmission Date: 20260118
  Serious: Yes (Other)
  Sender: ALEXION PHARMACEUTICALS
  Company Number: US-ASTRAZENECA-202512NAM014114US

PATIENT
  Sex: Male

DRUGS (2)
  1. OLAPARIB [Suspect]
     Active Substance: OLAPARIB
     Indication: Cholangiocarcinoma
     Dosage: 150 MILLIGRAM, BID
     Route: 061
     Dates: start: 202409
  2. OLAPARIB [Suspect]
     Active Substance: OLAPARIB
     Dosage: 100 MILLIGRAM, BID
     Route: 061
     Dates: start: 202409

REACTIONS (2)
  - Renal impairment [Unknown]
  - Anaemia [Unknown]
